FAERS Safety Report 15324244 (Version 1)
Quarter: 2018Q3

REPORT INFORMATION
  Report Type: Spontaneous
  Country: PL (occurrence: PL)
  Receive Date: 20180828
  Receipt Date: 20180828
  Transmission Date: 20181010
  Serious: Yes (Death)
  Sender: FDA-Public Use
  Company Number: PL-009507513-1808POL008893

PATIENT
  Age: 61 Year
  Sex: Male
  Weight: 75 kg

DRUGS (1)
  1. KEYTRUDA [Suspect]
     Active Substance: PEMBROLIZUMAB
     Indication: MALIGNANT MELANOMA
     Dosage: 2 MG/KG, UNK
     Route: 042
     Dates: end: 20170206

REACTIONS (11)
  - Blood creatine phosphokinase MB increased [Fatal]
  - Eyelid ptosis [Fatal]
  - Troponin increased [Fatal]
  - Blood lactate dehydrogenase abnormal [Fatal]
  - Acute coronary syndrome [Fatal]
  - Inflammation [Fatal]
  - Blood bilirubin increased [Fatal]
  - Transaminases increased [Fatal]
  - Blindness [Fatal]
  - Leukocytosis [Fatal]
  - Cardiac failure [Fatal]

NARRATIVE: CASE EVENT DATE: 20170227
